FAERS Safety Report 6167547-1 (Version None)
Quarter: 2009Q2

REPORT INFORMATION
  Report Type: 
  Country: None (occurrence: None)
  Receive Date: 20090424
  Receipt Date: 20090224
  Transmission Date: 20091009
  Serious: No
  Sender: FDA-Public Use
  Company Number: A0770744A

PATIENT
  Sex: Male

DRUGS (2)
  1. FLOVENT [Suspect]
     Indication: ASTHMA PROPHYLAXIS
     Route: 055
  2. UNKNOWN MEDICATION [Concomitant]

REACTIONS (3)
  - COUGH [None]
  - MALAISE [None]
  - WHEEZING [None]
